FAERS Safety Report 5378534-5 (Version None)
Quarter: 2007Q3

REPORT INFORMATION
  Report Type: 
  Country: None (occurrence: None)
  Receive Date: 20070705
  Receipt Date: 20070629
  Transmission Date: 20080115
  Serious: Yes (Hospitalization, Other)
  Sender: FDA-Public Use
  Company Number: NL-ASTRAZENECA-2007AC01204

PATIENT
  Sex: Female

DRUGS (2)
  1. ATENOLOL [Suspect]
     Dates: start: 20070601, end: 20070601
  2. TENORMIN [Concomitant]
     Dosage: STOPPED PRIOR TO STARTING GENERIC ATENOLOL.

REACTIONS (2)
  - CHEST DISCOMFORT [None]
  - CHEST PAIN [None]
